FAERS Safety Report 14357049 (Version 1)
Quarter: 2018Q1

REPORT INFORMATION
  Report Type: Spontaneous
  Country: FR (occurrence: FR)
  Receive Date: 20180105
  Receipt Date: 20180105
  Transmission Date: 20180509
  Serious: Yes (Other)
  Sender: FDA-Public Use
  Company Number: FR-MYLANLABS-2018M1000642

PATIENT
  Age: 46 Year
  Sex: Male

DRUGS (2)
  1. TEMOZOLOMIDE MYLAN [Suspect]
     Active Substance: TEMOZOLOMIDE
     Indication: LENTIGO MALIGNA
     Dosage: UNK
     Route: 065
  2. DACARBAZINE. [Suspect]
     Active Substance: DACARBAZINE
     Indication: LENTIGO MALIGNA
     Dosage: UNK
     Route: 065

REACTIONS (2)
  - Malignant neoplasm progression [Unknown]
  - Metastases to lung [Unknown]
